FAERS Safety Report 6192911-4 (Version None)
Quarter: 2009Q2

REPORT INFORMATION
  Report Type: 
  Country: None (occurrence: None)
  Receive Date: 20090514
  Receipt Date: 20090507
  Transmission Date: 20091009
  Serious: Yes (Other)
  Sender: FDA-Public Use
  Company Number: 1000006134

PATIENT
  Age: 80 Year
  Sex: Female

DRUGS (1)
  1. BYSTOLIC [Suspect]
     Dosage: 5 MG (5 MG), ORAL
     Route: 048

REACTIONS (1)
  - BLOOD PRESSURE INCREASED [None]
